FAERS Safety Report 18208021 (Version 2)
Quarter: 2020Q4

REPORT INFORMATION
  Report Type: Spontaneous
  Country: BR (occurrence: BR)
  Receive Date: 20200828
  Receipt Date: 20201002
  Transmission Date: 20210113
  Serious: Yes (Other)
  Sender: FDA-Public Use
  Company Number: BR-PFIZER INC-2020333264

PATIENT
  Sex: Female

DRUGS (1)
  1. XALATAN [Suspect]
     Active Substance: LATANOPROST
     Dosage: 1 DROP, DAILY (AT NIGHT)

REACTIONS (3)
  - Diabetes mellitus [Unknown]
  - Incorrect dose administered by product [Unknown]
  - Product container issue [Unknown]
